FAERS Safety Report 18972709 (Version 1)
Quarter: 2021Q1

REPORT INFORMATION
  Report Type: Spontaneous
  Country: US (occurrence: US)
  Receive Date: 20210305
  Receipt Date: 20210305
  Transmission Date: 20210420
  Serious: No
  Sender: FDA-Public Use
  Company Number: US-SA-2021SA059755

PATIENT
  Age: 54 Year
  Sex: Female

DRUGS (1)
  1. LOVENOX [Suspect]
     Active Substance: ENOXAPARIN SODIUM
     Indication: THROMBOSIS
     Dosage: DRUG STRUCTURE DOSAGE : NA DRUG INTERVAL DOSAGE : NA

REACTIONS (2)
  - Device issue [Unknown]
  - Incorrect dose administered [Unknown]
